FAERS Safety Report 20368140 (Version 3)
Quarter: 2022Q1

REPORT INFORMATION
  Report Type: Spontaneous
  Country: US (occurrence: US)
  Receive Date: 20220124
  Receipt Date: 20220224
  Transmission Date: 20220424
  Serious: Yes (Hospitalization, Other)
  Sender: FDA-Public Use
  Company Number: US-BIOCODEX2-2022000011

PATIENT

DRUGS (4)
  1. DIACOMIT [Suspect]
     Active Substance: STIRIPENTOL
     Indication: Epilepsy
     Dosage: 500 MG, QD 250 MG, TWICE PER DAY
     Route: 048
     Dates: start: 20190521
  2. ONFI [Concomitant]
     Active Substance: CLOBAZAM
     Indication: Epilepsy
     Dosage: 0.6 ML, QD 0.3 ML TWICE PER DAY. (2.5 MG/ML)
     Route: 065
     Dates: start: 20171018
  3. DEPAKOTE [Concomitant]
     Active Substance: DIVALPROEX SODIUM
     Indication: Epilepsy
     Dosage: 375 MG, QD 125 MG AT MORNING AND 250 MG IN THE AFTERNOON
     Route: 065
     Dates: start: 20141211
  4. TOPAMAX [Concomitant]
     Active Substance: TOPIRAMATE
     Indication: Epilepsy
     Dosage: 75 MG, QD 25 MG IN THE MORNING AND 50 MG IN THE AFTERNOON
     Route: 065
     Dates: start: 20170815

REACTIONS (6)
  - Influenza [Unknown]
  - COVID-19 [Unknown]
  - Brain injury [Unknown]
  - Product use in unapproved indication [Unknown]
  - Pyrexia [Unknown]
  - Ear infection [Unknown]
